FAERS Safety Report 18329219 (Version 1)
Quarter: 2020Q3

REPORT INFORMATION
  Report Type: Spontaneous
  Country: NO (occurrence: NO)
  Receive Date: 20200930
  Receipt Date: 20200930
  Transmission Date: 20201103
  Serious: Yes (Hospitalization, Other)
  Sender: FDA-Public Use
  Company Number: NO-SA-2020SA253734

PATIENT

DRUGS (7)
  1. RAMIPRIL. [Concomitant]
     Active Substance: RAMIPRIL
     Dosage: 2.5 MG, QD
     Route: 065
  2. ALBYL?E [Concomitant]
     Active Substance: ASPIRIN\MAGNESIUM OXIDE
     Dosage: 75 MG, QD
     Route: 065
  3. AUBAGIO [Suspect]
     Active Substance: TERIFLUNOMIDE
     Indication: MULTIPLE SCLEROSIS
     Dosage: 14 MG, QD
     Route: 048
     Dates: start: 201801, end: 202005
  4. ALENDRONAT [Concomitant]
     Active Substance: ALENDRONATE SODIUM
     Dosage: 75 MG, QW
     Route: 065
  5. INSPRA [Concomitant]
     Active Substance: EPLERENONE
     Dosage: 25 MG, QD
     Route: 065
  6. CALCIGRAN FORTE [Concomitant]
     Active Substance: CALCIUM CARBONATE\CHOLECALCIFEROL
     Dosage: 1000 MG/800 IU, QD
     Route: 065
  7. METOPROLOL. [Concomitant]
     Active Substance: METOPROLOL
     Dosage: 25 MG, QD DEPOT TABLETS
     Route: 065

REACTIONS (7)
  - Abdominal pain [Unknown]
  - Anastomotic leak [Unknown]
  - Infection [Unknown]
  - Condition aggravated [Unknown]
  - Adenocarcinoma of colon [Unknown]
  - Cardiac failure acute [Unknown]
  - Stress cardiomyopathy [Unknown]

NARRATIVE: CASE EVENT DATE: 2019
